FAERS Safety Report 11981620 (Version 1)
Quarter: 2016Q1

REPORT INFORMATION
  Report Type: Report from Study
  Country: US (occurrence: US)
  Receive Date: 20160131
  Receipt Date: 20160131
  Transmission Date: 20160526
  Serious: Yes (Disabling, Other)
  Sender: FDA-Public Use
  Company Number: PHEH2016US001841

PATIENT
  Age: 3 Year
  Sex: Male
  Weight: 12.3 kg

DRUGS (1)
  1. TASIGNA [Suspect]
     Active Substance: NILOTINIB
     Indication: LEUKAEMIA
     Dosage: 150 MG, QD
     Route: 048
     Dates: start: 20150401

REACTIONS (5)
  - Neuropathy peripheral [Unknown]
  - Weight decreased [Unknown]
  - Toxicity to various agents [Not Recovered/Not Resolved]
  - Hair growth abnormal [Unknown]
  - Decreased appetite [Unknown]

NARRATIVE: CASE EVENT DATE: 20151228
